FAERS Safety Report 9214770 (Version 2)
Quarter: 2013Q2

REPORT INFORMATION
  Report Type: Spontaneous
  Country: US (occurrence: US)
  Receive Date: 20130405
  Receipt Date: 20130625
  Transmission Date: 20140414
  Serious: Yes (Death, Hospitalization, Other)
  Sender: FDA-Public Use
  Company Number: US-BAYER-2013-042095

PATIENT
  Age: 51 Year
  Sex: Female

DRUGS (7)
  1. STIVARGA [Suspect]
     Indication: COLORECTAL CANCER METASTATIC
     Dosage: 40MG 4 TABS QD X 21 DAYS, OFF 7 DAYS
     Dates: start: 201303, end: 20130402
  2. MS CONTIN [Concomitant]
     Dosage: 15 MG, BID
  3. NEXIUM [Concomitant]
     Dosage: 40 MG, QD
  4. ALBUTEROL [Concomitant]
     Route: 055
  5. ATENOLOL [Concomitant]
     Dosage: 25 MG, QD
  6. DEXAMETHASONE [Concomitant]
     Dosage: 1 MG, QD
  7. KEPPRA [Concomitant]
     Dosage: 70 MG, BID

REACTIONS (7)
  - Death [Fatal]
  - Thrombocytopenia [None]
  - Liver function test abnormal [None]
  - Lactic acidosis [None]
  - Pneumonia [None]
  - Pyrexia [None]
  - Rash [None]
